FAERS Safety Report 11734407 (Version 14)
Quarter: 2021Q2

REPORT INFORMATION
  Report Type: Spontaneous
  Country: US (occurrence: US)
  Receive Date: 20151113
  Receipt Date: 20210614
  Transmission Date: 20210716
  Serious: Yes (Congenital Anomaly, Other)
  Sender: FDA-Public Use
  Company Number: PHEH2015US023285

PATIENT
  Sex: Male

DRUGS (2)
  1. ZOFRAN [Suspect]
     Active Substance: ONDANSETRON HYDROCHLORIDE
     Indication: FOETAL EXPOSURE DURING PREGNANCY
     Route: 064
  2. ONDANSETRON [Suspect]
     Active Substance: ONDANSETRON
     Indication: FOETAL EXPOSURE DURING PREGNANCY
     Dosage: MOTHER DOSE: 8 MG, PRN
     Route: 064

REACTIONS (40)
  - Bronchiolitis [Unknown]
  - Ear disorder [Unknown]
  - Bronchitis [Unknown]
  - Ventricular arrhythmia [Unknown]
  - Anhedonia [Unknown]
  - Constipation [Unknown]
  - Candida infection [Unknown]
  - Congenital anomaly [Unknown]
  - Croup infectious [Unknown]
  - Attention deficit hyperactivity disorder [Unknown]
  - Foetal exposure during pregnancy [Unknown]
  - Nasal congestion [Unknown]
  - Acute sinusitis [Unknown]
  - Injury [Unknown]
  - Subcutaneous abscess [Unknown]
  - Otorrhoea [Unknown]
  - Gastroenteritis viral [Unknown]
  - Deafness [Unknown]
  - Emotional distress [Unknown]
  - Feeding disorder [Unknown]
  - Seborrhoea [Unknown]
  - Speech disorder [Unknown]
  - Conjunctivitis [Unknown]
  - Intellectual disability [Unknown]
  - Rhinorrhoea [Unknown]
  - Rhinitis [Unknown]
  - Cleft palate [Unknown]
  - Pain [Unknown]
  - Upper respiratory tract infection [Unknown]
  - Ear infection [Unknown]
  - Anaemia [Unknown]
  - Acarodermatitis [Unknown]
  - Defiant behaviour [Unknown]
  - Otitis media chronic [Unknown]
  - Eating disorder [Unknown]
  - Otitis media [Unknown]
  - Anxiety [Unknown]
  - Cough [Unknown]
  - Respiratory syncytial virus infection [Unknown]
  - Adenoidal hypertrophy [Unknown]
